FAERS Safety Report 8846316 (Version 2)
Quarter: 2012Q4

REPORT INFORMATION
  Report Type: 
  Country: US (occurrence: US)
  Receive Date: 20121018
  Receipt Date: 20121122
  Transmission Date: 20130627
  Serious: Yes (Hospitalization)
  Sender: FDA-Public Use
  Company Number: US-BIOGENIDEC-2012BI044235

PATIENT
  Age: 43 Year
  Sex: Female

DRUGS (8)
  1. AVONEX [Suspect]
     Indication: MULTIPLE SCLEROSIS
     Route: 030
     Dates: start: 19970701, end: 2003
  2. AVONEX [Suspect]
     Indication: MULTIPLE SCLEROSIS
     Route: 030
     Dates: start: 2003, end: 201208
  3. DIAZEPAM [Concomitant]
     Indication: PANIC ATTACK
  4. LORAZEPAM [Concomitant]
     Indication: PANIC ATTACK
  5. DILAUDID [Concomitant]
     Indication: BACK PAIN
  6. DILAUDID [Concomitant]
     Indication: NECK PAIN
  7. DIFLUCAN [Concomitant]
     Indication: FUNGAL OESOPHAGITIS
     Dates: end: 201204
  8. PREVACID SOLU-TABS [Concomitant]
     Indication: GASTROOESOPHAGEAL REFLUX DISEASE
     Dates: end: 201204

REACTIONS (9)
  - Oesophageal perforation [Recovered/Resolved]
  - Chest pain [Recovered/Resolved]
  - Muscle spasms [Recovered/Resolved]
  - Musculoskeletal stiffness [Recovered/Resolved]
  - Gastrooesophageal reflux disease [Not Recovered/Not Resolved]
  - Panic attack [Unknown]
  - Anxiety [Unknown]
  - Asthenia [Not Recovered/Not Resolved]
  - Muscular weakness [Not Recovered/Not Resolved]
